FAERS Safety Report 10070788 (Version 3)
Quarter: 2014Q3

REPORT INFORMATION
  Report Type: Report from Study
  Country: US (occurrence: US)
  Receive Date: 20140410
  Receipt Date: 20140703
  Transmission Date: 20150326
  Serious: Yes (Hospitalization)
  Sender: FDA-Public Use
  Company Number: US-VERTEX PHARMACEUTICALS INC-2014-001556

PATIENT
  Age: 14 Year
  Sex: Male
  Weight: 58 kg

DRUGS (18)
  1. POLYETHYLENE GLYCOL [Concomitant]
     Active Substance: POLYETHYLENE GLYCOLS
     Dosage: 25.5 G, BID
     Route: 048
     Dates: start: 20111209
  2. AZTREONAM. [Concomitant]
     Active Substance: AZTREONAM
     Dosage: 75 MG, INH BID
     Dates: start: 20131211
  3. RANITIDINE [Concomitant]
     Active Substance: RANITIDINE\RANITIDINE HYDROCHLORIDE
     Indication: GASTROOESOPHAGEAL REFLUX DISEASE
     Dosage: 150 MG, BID
     Route: 048
     Dates: start: 20140409
  4. DORNASE ALFA [Concomitant]
     Active Substance: DORNASE ALFA
     Dosage: 2.5 MG, INH BID
     Dates: start: 20111209
  5. MONTELUKAST [Concomitant]
     Active Substance: MONTELUKAST SODIUM
     Dosage: 5 MG, HS
     Route: 048
     Dates: start: 20111209
  6. CYPROHEPTADINE. [Concomitant]
     Active Substance: CYPROHEPTADINE
     Dosage: 4 MG, QD X 7 DAYS
     Dates: start: 20120530
  7. ALBUTEROL. [Concomitant]
     Active Substance: ALBUTEROL
     Dosage: 2 PUFF INH BID
     Dates: start: 20140409
  8. IVACAFTOR [Suspect]
     Active Substance: IVACAFTOR
     Indication: CYSTIC FIBROSIS
     Dosage: 150 MG, BID
     Route: 048
     Dates: start: 20140314
  9. SODIUM CHLORIDE. [Concomitant]
     Active Substance: SODIUM CHLORIDE
     Dosage: 7 ML, INH BID
     Dates: start: 20111209
  10. PANCRELIPASE [Concomitant]
     Active Substance: PANCRELIPASE
     Dosage: 6.5 DF, WITH MEALS
     Route: 048
     Dates: start: 20130320
  11. BECLOMETHASONE DIPROPIONATE [Concomitant]
     Active Substance: BECLOMETHASONE DIPROPIONATE
     Dosage: 2 PUFFS INHALED BID
     Dates: start: 20111209
  12. LACTOBACILLUS RHAMNOSUS [Concomitant]
     Active Substance: LACTOBACILLUS RHAMNOSUS
     Dosage: 1 DF, BID
     Route: 048
     Dates: start: 20120615
  13. AMLODIPINE BESILATE [Concomitant]
     Active Substance: AMLODIPINE BESYLATE
     Dosage: 5 MG, QD
     Route: 048
     Dates: start: 20130130
  14. PANCRELIPASE [Concomitant]
     Active Substance: PANCRELIPASE
     Dosage: 4 DF, WITH SNACKS
     Route: 048
     Dates: start: 20131211
  15. CHOLECALCIFEROL [Concomitant]
     Active Substance: CHOLECALCIFEROL
     Dosage: 1000 UT, BID
     Route: 048
     Dates: start: 20111209
  16. MULTIVITAMINS W ZINC [Concomitant]
     Dosage: 1 DF, BID
     Route: 048
     Dates: start: 20111209
  17. MOMETASONE FUROATE. [Concomitant]
     Active Substance: MOMETASONE FUROATE
     Dosage: 2 SPRAY NAS QD
     Dates: start: 20131211
  18. PHYTONADIONE. [Concomitant]
     Active Substance: PHYTONADIONE
     Dosage: 5 MG, QD
     Route: 048
     Dates: start: 20140414

REACTIONS (4)
  - Infective pulmonary exacerbation of cystic fibrosis [Recovered/Resolved]
  - Cough [Recovered/Resolved]
  - Antibiotic prophylaxis [Unknown]
  - Headache [Recovered/Resolved]

NARRATIVE: CASE EVENT DATE: 2014
